FAERS Safety Report 17395688 (Version 1)
Quarter: 2020Q1

REPORT INFORMATION
  Report Type: Spontaneous
  Country: US (occurrence: US)
  Receive Date: 20200124
  Receipt Date: 20200124
  Transmission Date: 20200409
  Serious: Yes (Life-Threatening, Other)
  Sender: FDA-Public Use
  Company Number: None

PATIENT
  Age: 59 Year
  Sex: Female
  Weight: 112.49 kg

DRUGS (14)
  1. BIOTIN [Concomitant]
     Active Substance: BIOTIN
  2. BENADRYL [Concomitant]
     Active Substance: DIPHENHYDRAMINE HYDROCHLORIDE
  3. ASPIRIN. [Concomitant]
     Active Substance: ASPIRIN
  4. PEPCID [Concomitant]
     Active Substance: FAMOTIDINE
  5. ZINC. [Concomitant]
     Active Substance: ZINC
  6. CLONIDINE. [Concomitant]
     Active Substance: CLONIDINE
  7. CALCIUM [Concomitant]
     Active Substance: CALCIUM
  8. DOXYCYCLINE HYCLATE 100MG CAP [Suspect]
     Active Substance: DOXYCYCLINE HYCLATE
     Indication: OSTEOMYELITIS
     Dosage: ?          QUANTITY:1 CAP;?
     Route: 048
     Dates: start: 20200110, end: 20200114
  9. CLARITIN [Concomitant]
     Active Substance: LORATADINE
  10. PREDNISONE. [Concomitant]
     Active Substance: PREDNISONE
  11. ALPRAZOLAM. [Concomitant]
     Active Substance: ALPRAZOLAM
  12. VITAMIN C [Concomitant]
     Active Substance: ASCORBIC ACID
  13. VITAMIN B12 [Concomitant]
     Active Substance: CYANOCOBALAMIN
  14. D [Concomitant]

REACTIONS (2)
  - Anaphylactic reaction [None]
  - Rubber sensitivity [None]

NARRATIVE: CASE EVENT DATE: 20200114
